FAERS Safety Report 25927788 (Version 1)
Quarter: 2025Q4

REPORT INFORMATION
  Report Type: Spontaneous
  Country: US (occurrence: US)
  Receive Date: 20251016
  Receipt Date: 20251016
  Transmission Date: 20260118
  Serious: No
  Sender: TEVA
  Company Number: US-TEVA-VS-3381454

PATIENT
  Age: 44 Year
  Sex: Female

DRUGS (1)
  1. AJOVY [Suspect]
     Active Substance: FREMANEZUMAB-VFRM
     Indication: Product used for unknown indication
     Dosage: 225/1.5MG/ML
     Route: 065
     Dates: start: 20251010

REACTIONS (4)
  - Injection site haemorrhage [Unknown]
  - Incorrect dose administered by product [Unknown]
  - Device issue [Unknown]
  - Accidental exposure to product [Unknown]

NARRATIVE: CASE EVENT DATE: 20251010
